FAERS Safety Report 6579922-1 (Version None)
Quarter: 2010Q1

REPORT INFORMATION
  Report Type: 
  Country: None (occurrence: None)
  Receive Date: 20100212
  Receipt Date: 20100120
  Transmission Date: 20100710
  Serious: Yes (Death, Life-Threatening, Hospitalization)
  Sender: FDA-Public Use
  Company Number: BY-SANOFI-AVENTIS-2009SA011397

PATIENT
  Age: 63 Year
  Sex: Male
  Weight: 35 kg

DRUGS (7)
  1. ENOXAPARIN SODIUM [Suspect]
     Indication: THROMBOSIS PROPHYLAXIS
     Route: 058
     Dates: start: 20091222, end: 20091224
  2. EUPHYLLINE [Concomitant]
     Route: 065
     Dates: start: 20091222
  3. OCTREOTIDE ACETATE [Concomitant]
     Route: 065
     Dates: start: 20091222
  4. QUAMATEL [Concomitant]
     Route: 065
     Dates: start: 20091222
  5. CEFOTAXIM [Concomitant]
     Route: 065
     Dates: start: 20091222
  6. CIPROFLOXACIN [Concomitant]
     Route: 065
     Dates: start: 20091222
  7. DEXTRAN INJ [Concomitant]
     Route: 065
     Dates: start: 20091222

REACTIONS (5)
  - ANASTOMOTIC HAEMORRHAGE [None]
  - ANASTOMOTIC STENOSIS [None]
  - DISSEMINATED INTRAVASCULAR COAGULATION [None]
  - PERITONITIS [None]
  - THROMBOCYTOPENIA [None]
